FAERS Safety Report 20231671 (Version 1)
Quarter: 2021Q4

REPORT INFORMATION
  Report Type: Spontaneous
  Country: US (occurrence: US)
  Receive Date: 20211227
  Receipt Date: 20211227
  Transmission Date: 20220303
  Serious: No
  Sender: FDA-Public Use
  Company Number: US-AVEO ONCOLOGY-2021-AVEO-US003626

PATIENT

DRUGS (20)
  1. FOTIVDA [Suspect]
     Active Substance: TIVOZANIB HYDROCHLORIDE
     Indication: Renal cell carcinoma
     Dosage: 1.34 MG DAILY, ONE CAP ONCE DAY FOR 21 DAYS, THEN 7 DAYS OFF
     Route: 048
     Dates: start: 20210719
  2. ALLOPURINOL [Concomitant]
     Active Substance: ALLOPURINOL
  3. BETA CAROTENE [Concomitant]
     Active Substance: BETA CAROTENE
  4. COLCRYS [Concomitant]
     Active Substance: COLCHICINE
  5. CRESTOR [Concomitant]
     Active Substance: ROSUVASTATIN CALCIUM
  6. DURAGESIC [Concomitant]
     Active Substance: FENTANYL
  7. ELIQUIS [Concomitant]
     Active Substance: APIXABAN
  8. LASIX [Concomitant]
     Active Substance: FUROSEMIDE
  9. LEVOTHYROXINE [Concomitant]
     Active Substance: LEVOTHYROXINE
  10. LIDOCAINE\PRILOCAINE [Concomitant]
     Active Substance: LIDOCAINE\PRILOCAINE
  11. LISINOPRIL [Concomitant]
     Active Substance: LISINOPRIL
  12. LOPERAMIDE [Concomitant]
     Active Substance: LOPERAMIDE
  13. LORATADINE [Concomitant]
     Active Substance: LORATADINE
  14. MAGNESIUM OXIDE [Concomitant]
     Active Substance: MAGNESIUM OXIDE
  15. METOPROLOL [Concomitant]
     Active Substance: METOPROLOL
  16. VITAMINS [Concomitant]
     Active Substance: VITAMINS
  17. NALOXONE [Concomitant]
     Active Substance: NALOXONE
  18. OMEPRAZOLE [Concomitant]
     Active Substance: OMEPRAZOLE
  19. POTASSIUM CHLORIDE [Concomitant]
     Active Substance: POTASSIUM CHLORIDE
  20. PROCHLORPERAZINE [Concomitant]
     Active Substance: PROCHLORPERAZINE

REACTIONS (4)
  - Peripheral swelling [Recovering/Resolving]
  - Blister [Unknown]
  - Pain in extremity [Unknown]
  - Proteinuria [Unknown]
